FAERS Safety Report 6546671-5 (Version None)
Quarter: 2010Q1

REPORT INFORMATION
  Report Type: 
  Country: None (occurrence: None)
  Receive Date: 20100122
  Receipt Date: 20091222
  Transmission Date: 20100710
  Serious: No
  Sender: FDA-Public Use
  Company Number: US-BAYER-200825256NA

PATIENT
  Age: 58 Year
  Sex: Male
  Weight: 91 kg

DRUGS (7)
  1. BETASERON [Suspect]
     Indication: RELAPSING-REMITTING MULTIPLE SCLEROSIS
     Dosage: TOTAL DAILY DOSE: 6 MIU
  2. BETASERON [Suspect]
     Dosage: TOTAL DAILY DOSE: 8 MIU
     Dates: start: 20070901, end: 20071001
  3. BETASERON [Suspect]
     Dosage: AS USED: 2 MIU
     Dates: start: 20070901
  4. BETASERON [Suspect]
     Dosage: AS USED: 4 MIU
  5. ELMIRON [Concomitant]
  6. LEVOTHYROXINE SODIUM [Concomitant]
  7. XALATAN [Concomitant]

REACTIONS (6)
  - BALANCE DISORDER [None]
  - GASTROINTESTINAL DISORDER [None]
  - HYPOAESTHESIA [None]
  - MULTIPLE SCLEROSIS [None]
  - MUSCLE SPASMS [None]
  - SENSATION OF HEAVINESS [None]
